FAERS Safety Report 6237784-6 (Version None)
Quarter: 2009Q2

REPORT INFORMATION
  Report Type: 
  Country: None (occurrence: None)
  Receive Date: 20090617
  Receipt Date: 20090605
  Transmission Date: 20091009
  Serious: Yes (Other)
  Sender: FDA-Public Use
  Company Number: 2009AL003722

PATIENT
  Age: 38 Year
  Sex: Female

DRUGS (12)
  1. RANITIDINE [Suspect]
     Indication: PROPHYLAXIS
  2. SULFATRIM PEDIATRIC [Suspect]
     Indication: PROPHYLAXIS
  3. ACYCLOVIR [Suspect]
     Indication: PROPHYLAXIS
  4. VINBLASTINE SULFATE [Concomitant]
  5. VINCRISTINE [Concomitant]
  6. BELOMYCIN [Concomitant]
  7. CHLORMETHINE [Concomitant]
  8. ETOPOSIDE [Concomitant]
  9. PREDNISONE TAB [Concomitant]
  10. FLUCONAZOLE [Concomitant]
  11. VALACYCLOVIR [Concomitant]
  12. DOXORUBICIN HCL [Concomitant]

REACTIONS (4)
  - HAEMATOTOXICITY [None]
  - NEUTROPENIA [None]
  - NON-HODGKIN'S LYMPHOMA [None]
  - TREATMENT RELATED SECONDARY MALIGNANCY [None]
